FAERS Safety Report 17486111 (Version 1)
Quarter: 2020Q1

REPORT INFORMATION
  Report Type: Spontaneous
  Country: US (occurrence: US)
  Receive Date: 20200303
  Receipt Date: 20200303
  Transmission Date: 20200409
  Serious: Yes (Hospitalization, Other)
  Sender: FDA-Public Use
  Company Number: US-ALEMBIC PHARMACUETICALS LIMITED-2020SCAL000092

PATIENT

DRUGS (1)
  1. OLMESARTAN MEDOXIMIL [Suspect]
     Active Substance: OLMESARTAN MEDOXOMIL
     Indication: HYPERTENSION
     Dosage: OLMESARTAN FOR 1.5 YEARS

REACTIONS (9)
  - Vomiting [Unknown]
  - Aphthous ulcer [Unknown]
  - Anal incontinence [Unknown]
  - Diarrhoea [Recovered/Resolved]
  - Large intestinal ulcer [Unknown]
  - Nausea [Unknown]
  - Dehydration [Unknown]
  - Colitis [Unknown]
  - Gastrointestinal disorder [Unknown]
